FAERS Safety Report 4533711-8 (Version None)
Quarter: 2004Q4

REPORT INFORMATION
  Report Type: 
  Country: None (occurrence: None)
  Receive Date: 20041221
  Receipt Date: 20021120
  Transmission Date: 20050328
  Serious: Yes (Death, Other)
  Sender: FDA-Public Use
  Company Number: GB-GLAXOSMITHKLINE-B0285859A

PATIENT
  Age: 56 Year
  Sex: Male
  Weight: 68 kg

DRUGS (3)
  1. SEROXAT [Suspect]
     Indication: DEPRESSION
     Route: 048
     Dates: start: 20020923
  2. DOTHIEPIN HYDROCHLORIDE [Concomitant]
  3. ZOPICLONE [Concomitant]
     Indication: INSOMNIA
     Dosage: 7.5MG AT NIGHT
     Route: 048
     Dates: start: 20020902

REACTIONS (1)
  - COMPLETED SUICIDE [None]
